FAERS Safety Report 7936692-X (Version None)
Quarter: 2011Q4

REPORT INFORMATION
  Report Type: 
  Country: None (occurrence: None)
  Receive Date: 20111123
  Receipt Date: 20111117
  Transmission Date: 20120403
  Serious: Yes (Hospitalization)
  Sender: FDA-Public Use
  Company Number: US-PFIZER INC-2011281292

PATIENT
  Age: 66 Year
  Sex: Female
  Weight: 64.9 kg

DRUGS (7)
  1. LEVOTHYROXINE SODIUM [Concomitant]
  2. AZACITIDINE [Suspect]
     Indication: ACUTE MYELOID LEUKAEMIA
     Dosage: 75 MG/M2/DAY, SC OR IV ON DAYS 1-7 (TOTAL DOSE THIS COURSE: 896MG)
     Dates: start: 20111004, end: 20111010
  3. BENADRYL [Concomitant]
  4. ZOLINZA [Suspect]
     Indication: ACUTE MYELOID LEUKAEMIA
     Dosage: 400 MG, 1X/DAY ON DAYS 1-9 (TOTAL DOSE THIS COURSE: 3600MG)
     Route: 048
     Dates: start: 20111004, end: 20111012
  5. HYDROCODONE [Concomitant]
  6. LIPITOR [Concomitant]
  7. MYLOTARG [Suspect]
     Indication: ACUTE MYELOID LEUKAEMIA
     Dosage: 3 MG/M2, OVER 2 HRS ON DAYS 4 AND 8 (TOTAL DOSE THIS COURSE: 10.2MG)
     Route: 042
     Dates: start: 20111004, end: 20111011

REACTIONS (6)
  - WHITE BLOOD CELL COUNT DECREASED [None]
  - FEBRILE NEUTROPENIA [None]
  - PLEURAL EFFUSION [None]
  - INJECTION SITE REACTION [None]
  - PNEUMONITIS [None]
  - CARDIAC FAILURE [None]
